FAERS Safety Report 8215489-X (Version None)
Quarter: 2012Q1

REPORT INFORMATION
  Report Type: 
  Country: None (occurrence: None)
  Receive Date: 20120316
  Receipt Date: 20120313
  Transmission Date: 20120608
  Serious: Yes (Life-Threatening, Hospitalization)
  Sender: FDA-Public Use
  Company Number: JP-JNJFOC-20111008551

PATIENT
  Sex: Male

DRUGS (16)
  1. CODEINE PHOSPHATE HEMIHYDRATE [Concomitant]
     Route: 048
     Dates: start: 20110401
  2. TEGRETOL [Concomitant]
     Indication: PAIN
     Route: 048
     Dates: end: 20110613
  3. MEROPENEM [Concomitant]
     Route: 042
     Dates: start: 20110615, end: 20110704
  4. ZOSYN [Concomitant]
     Route: 042
     Dates: start: 20110614, end: 20110615
  5. FENTANYL-100 [Suspect]
     Indication: PAIN
     Route: 062
     Dates: start: 20110514, end: 20110613
  6. CODEINE PHOSPHATE HEMIHYDRATE [Concomitant]
     Route: 048
     Dates: start: 20110408
  7. SHAKUYAKUKANZOUTOU [Concomitant]
     Indication: PAIN
     Route: 048
     Dates: end: 20110613
  8. CLONAZEPAM [Concomitant]
     Indication: PAIN
     Route: 048
     Dates: end: 20110613
  9. GABAPENTIN [Concomitant]
     Indication: PAIN
     Route: 048
     Dates: end: 20110613
  10. FENTANYL-100 [Suspect]
     Route: 062
     Dates: start: 20110423, end: 20110513
  11. FENTANYL-100 [Suspect]
     Route: 062
     Dates: start: 20110318, end: 20110422
  12. ROCEPHIN [Concomitant]
     Route: 042
     Dates: start: 20110611, end: 20110613
  13. CODEINE PHOSPHATE HEMIHYDRATE [Concomitant]
     Indication: PAIN
     Route: 048
     Dates: start: 20110318
  14. CODEINE PHOSPHATE HEMIHYDRATE [Concomitant]
     Route: 048
     Dates: start: 20110325
  15. VOLTAREN [Concomitant]
     Indication: PAIN
     Route: 054
     Dates: end: 20110613
  16. CODEINE PHOSPHATE HEMIHYDRATE [Concomitant]
     Dosage: AS NECESSARY
     Route: 048
     Dates: end: 20110613

REACTIONS (5)
  - SEPTIC SHOCK [None]
  - CHOLECYSTITIS [None]
  - CHOLELITHIASIS [None]
  - NAUSEA [None]
  - SOMNOLENCE [None]
